FAERS Safety Report 9236892 (Version 2)
Quarter: 2013Q2

REPORT INFORMATION
  Report Type: Spontaneous
  Country: DE (occurrence: None)
  Receive Date: 20130415
  Receipt Date: 20130606
  Transmission Date: 20140414
  Serious: Yes (Hospitalization)
  Sender: FDA-Public Use
  Company Number: GER/GER/13/0028972

PATIENT
  Age: 55 Year
  Sex: Male

DRUGS (2)
  1. VENLAFAXINE [Suspect]
     Indication: GENERALISED ANXIETY DISORDER
  2. TRAZODONE [Suspect]
     Indication: GENERALISED ANXIETY DISORDER

REACTIONS (6)
  - Hypertension [None]
  - Restlessness [None]
  - Tremor [None]
  - Condition aggravated [None]
  - Drug level above therapeutic [None]
  - Essential tremor [None]
